FAERS Safety Report 6828198-6 (Version None)
Quarter: 2010Q3

REPORT INFORMATION
  Report Type: 
  Country: None (occurrence: None)
  Receive Date: 20100709
  Receipt Date: 20070202
  Transmission Date: 20110219
  Serious: No
  Sender: FDA-Public Use
  Company Number: US-PFIZER INC-2007009707

PATIENT
  Sex: Female
  Weight: 53.52 kg

DRUGS (6)
  1. CHANTIX [Suspect]
     Indication: SMOKING CESSATION THERAPY
     Dates: start: 20070101
  2. COMBIVENT [Concomitant]
     Route: 055
  3. ADVAIR DISKUS 100/50 [Concomitant]
     Route: 055
  4. ZOCOR [Concomitant]
  5. EVISTA [Concomitant]
  6. SYNTHROID [Concomitant]

REACTIONS (2)
  - MUSCLE SPASMS [None]
  - NAUSEA [None]
